FAERS Safety Report 11618506 (Version 1)
Quarter: 2015Q4

REPORT INFORMATION
  Report Type: Spontaneous
  Country: US (occurrence: US)
  Receive Date: 20151012
  Receipt Date: 20151012
  Transmission Date: 20160304
  Serious: No
  Sender: FDA-Public Use
  Company Number: US-GLENMARK PHARMACEUTICALS INC, USA.-2015GMK018079

PATIENT
  Age: 76 Year
  Sex: Female

DRUGS (23)
  1. GABAPENTIN. [Suspect]
     Active Substance: GABAPENTIN
     Indication: STOMATITIS
  2. GABAPENTIN. [Suspect]
     Active Substance: GABAPENTIN
     Indication: NEURALGIA
  3. MORPHINE SULFATE. [Concomitant]
     Active Substance: MORPHINE SULFATE
     Indication: NEURALGIA
  4. OXYCODONE [Concomitant]
     Active Substance: OXYCODONE
     Indication: STOMATITIS
  5. LIDOCAINE. [Suspect]
     Active Substance: LIDOCAINE
     Indication: NEURALGIA
  6. OXYCODONE [Concomitant]
     Active Substance: OXYCODONE
     Indication: ORAL PAIN
     Dosage: 1 DF, PRN EVERY 8 HOURS
  7. MORPHINE SULFATE. [Concomitant]
     Active Substance: MORPHINE SULFATE
     Indication: ORAL PAIN
     Dosage: 20 MG, BID
     Route: 048
  8. ACETAMINOPHEN. [Concomitant]
     Active Substance: ACETAMINOPHEN
     Indication: ORAL PAIN
     Dosage: 1 DF, PRN EVERY 8 HOURS
     Route: 048
  9. ACETAMINOPHEN. [Concomitant]
     Active Substance: ACETAMINOPHEN
     Indication: STOMATITIS
  10. NYSTATIN. [Suspect]
     Active Substance: NYSTATIN
     Indication: FUNGAL OESOPHAGITIS
     Dosage: 25000 U/ML, QID
     Route: 048
  11. NYSTATIN. [Suspect]
     Active Substance: NYSTATIN
     Indication: NEURALGIA
  12. DIPHENHYDRAMINE                    /00000402/ [Suspect]
     Active Substance: DIPHENHYDRAMINE
     Indication: STOMATITIS
  13. MORPHINE SULFATE. [Concomitant]
     Active Substance: MORPHINE SULFATE
     Indication: STOMATITIS
     Dosage: 10 MG, EVERY 12 HRS
     Route: 048
  14. ACETAMINOPHEN. [Concomitant]
     Active Substance: ACETAMINOPHEN
     Indication: NEURALGIA
  15. GABAPENTIN. [Suspect]
     Active Substance: GABAPENTIN
     Indication: ORAL PAIN
     Dosage: 100 MG/ML, QID
     Route: 048
  16. DIPHENHYDRAMINE                    /00000402/ [Suspect]
     Active Substance: DIPHENHYDRAMINE
     Indication: ORAL PAIN
     Dosage: 0.63 MG/ML, QID
     Route: 048
  17. DIPHENHYDRAMINE                    /00000402/ [Suspect]
     Active Substance: DIPHENHYDRAMINE
     Indication: NEURALGIA
  18. NYSTATIN. [Suspect]
     Active Substance: NYSTATIN
     Indication: ORAL PAIN
  19. NYSTATIN. [Suspect]
     Active Substance: NYSTATIN
     Indication: STOMATITIS
  20. LIDOCAINE. [Suspect]
     Active Substance: LIDOCAINE
     Indication: ORAL PAIN
     Dosage: UNK, QD EVERY 4 HOURS
     Route: 048
  21. LIDOCAINE. [Suspect]
     Active Substance: LIDOCAINE
     Indication: STOMATITIS
     Dosage: 10 MG/ML, UNK
     Route: 048
  22. NYSTATIN. [Suspect]
     Active Substance: NYSTATIN
     Indication: ORAL FUNGAL INFECTION
     Dosage: UNK
     Route: 048
  23. OXYCODONE [Concomitant]
     Active Substance: OXYCODONE
     Indication: NEURALGIA

REACTIONS (3)
  - Incorrect route of drug administration [Unknown]
  - Off label use [Unknown]
  - Therapeutic response unexpected [Unknown]
